FAERS Safety Report 9099837 (Version 1)
Quarter: 2013Q1

REPORT INFORMATION
  Report Type: Spontaneous
  Country: JP (occurrence: JP)
  Receive Date: 20130214
  Receipt Date: 20130214
  Transmission Date: 20140127
  Serious: No
  Sender: FDA-Public Use
  Company Number: JP-ROCHE-1190706

PATIENT
  Age: 8 Decade
  Sex: Male

DRUGS (1)
  1. TAMIFLU [Suspect]
     Indication: INFLUENZA
     Dosage: DOSAGE IS UNCERTAIN
     Route: 048

REACTIONS (1)
  - Overdose [Unknown]
